FAERS Safety Report 17547544 (Version 1)
Quarter: 2020Q1

REPORT INFORMATION
  Report Type: Spontaneous
  Country: CH (occurrence: CH)
  Receive Date: 20200316
  Receipt Date: 20200316
  Transmission Date: 20200409
  Serious: Yes (Other)
  Sender: FDA-Public Use
  Company Number: CH-ALLERGAN-2011512US

PATIENT
  Sex: Male

DRUGS (6)
  1. CITALOPRAM HYDROBROMIDE - BP [Suspect]
     Active Substance: CITALOPRAM HYDROBROMIDE
     Indication: EXPOSURE DURING PREGNANCY
     Route: 064
  2. ZYPREXA [Suspect]
     Active Substance: OLANZAPINE
     Indication: EXPOSURE DURING PREGNANCY
     Route: 064
  3. RISPERDAL [Suspect]
     Active Substance: RISPERIDONE
     Indication: EXPOSURE DURING PREGNANCY
     Route: 064
  4. HALDOL [Suspect]
     Active Substance: HALOPERIDOL
     Indication: EXPOSURE DURING PREGNANCY
     Route: 064
  5. AKINETON [Suspect]
     Active Substance: BIPERIDEN HYDROCHLORIDE
     Indication: EXPOSURE DURING PREGNANCY
     Route: 064
  6. DEPAKINE                           /00228501/ [Suspect]
     Active Substance: VALPROIC ACID
     Indication: EXPOSURE DURING PREGNANCY
     Dosage: 1 DF
     Route: 064
     Dates: start: 19960225, end: 199608

REACTIONS (5)
  - Cognitive disorder [Not Recovered/Not Resolved]
  - Liver disorder [Not Recovered/Not Resolved]
  - Mental disability [Not Recovered/Not Resolved]
  - Eye disorder [Not Recovered/Not Resolved]
  - Pregnancy [Unknown]

NARRATIVE: CASE EVENT DATE: 1996
